FAERS Safety Report 19780757 (Version 2)
Quarter: 2021Q3

REPORT INFORMATION
  Report Type: Spontaneous
  Country: IT (occurrence: IT)
  Receive Date: 20210902
  Receipt Date: 20210909
  Transmission Date: 20211014
  Serious: Yes (Hospitalization)
  Sender: FDA-Public Use
  Company Number: NVSC2021IT193847

PATIENT
  Age: 50 Year
  Sex: Female
  Weight: 60 kg

DRUGS (12)
  1. PERTUZUMAB. [Concomitant]
     Active Substance: PERTUZUMAB
     Indication: BREAST CANCER
     Dosage: 840 MG, Q3W (DATE OF MOST RECENT DOSE OF PERTUZUMAB (420 MG) PRIOR TO SAE ONSET: 16/JUL/2021840 MG L
     Route: 042
     Dates: start: 20210409
  2. TRASTUZUMAB. [Suspect]
     Active Substance: TRASTUZUMAB
     Dosage: UNK, Q3W (RECENT DOSE (348 MG) PRIOR TO SAE ONSET: 16JUL2021 6 MG/KG MAINTAIN DOSE)
     Route: 041
  3. IBUPROFEN. [Concomitant]
     Active Substance: IBUPROFEN
     Indication: PAIN
     Dosage: UNK
     Route: 065
     Dates: start: 20210330, end: 20210809
  4. PERTUZUMAB. [Concomitant]
     Active Substance: PERTUZUMAB
     Dosage: UNK, Q3W (DATE OF MOST RECENT DOSE OF (420 MG) PRIOR TO SAE ONSET: 16JUL2021 420 MG MAINTAIN DOSE)
     Route: 042
  5. PERTUZUMAB. [Concomitant]
     Active Substance: PERTUZUMAB
     Dosage: DATE OF MOST RECENT DOSE OF PERTUZUMAB (420 MG) PRIOR TO SAE ONSET: 16/JUL/2021
     Route: 042
     Dates: start: 20210409
  6. PARACETAMOL/CODEINE [Concomitant]
     Active Substance: ACETAMINOPHEN\CODEINE PHOSPHATE
     Indication: PAIN
     Dosage: UNK
     Route: 065
     Dates: start: 20210330, end: 20210809
  7. PARACETAMOL [Concomitant]
     Active Substance: ACETAMINOPHEN
     Indication: PAIN
     Dosage: UNK
     Route: 065
     Dates: start: 20210330, end: 20210809
  8. PACLITAXEL. [Suspect]
     Active Substance: PACLITAXEL
     Indication: BREAST CANCER
     Dosage: DATE OF MOST RECENT DOSE OF PACLITAXEL (130 MG) PRIOR TO SAE ONSET: 23JUL/2021
     Route: 042
     Dates: start: 20210409, end: 20210819
  9. TRASTUZUMAB. [Suspect]
     Active Substance: TRASTUZUMAB
     Indication: BREAST CANCER
     Dosage: 8 MG, Q3W ((MOST RECENT DOSE OF (348 MG) PRIOR TO SAE ONSET: 16JUL2021 8 MG/KG)
     Route: 041
     Dates: start: 20210409
  10. CARBOPLATIN. [Suspect]
     Active Substance: CARBOPLATIN
     Indication: BREAST CANCER
     Dosage: UNK UNK, Q3W (DATE OF MOST RECENT DOSE OF CARBOPLATIN (180 MG) PRIOR TO SAE ONSET: 23JUL/2021)
     Route: 042
     Dates: start: 20210409, end: 20210819
  11. ATEZOLIZUMAB. [Suspect]
     Active Substance: ATEZOLIZUMAB
     Indication: BREAST CANCER
     Dosage: DATE OF MOST RECENT DOSE OF ATEZOLIZUMAB (1200 MG) PRIOR TO SAE ONSET: 16/JUL/2021
     Route: 041
     Dates: start: 20210409, end: 20210819
  12. IBUPROFEN. [Concomitant]
     Active Substance: IBUPROFEN
     Dosage: UNK
     Route: 065
     Dates: start: 20210809, end: 20210812

REACTIONS (1)
  - Renal failure [Recovering/Resolving]

NARRATIVE: CASE EVENT DATE: 20210812
